FAERS Safety Report 19630665 (Version 2)
Quarter: 2021Q3

REPORT INFORMATION
  Report Type: Spontaneous
  Country: US (occurrence: US)
  Receive Date: 20210728
  Receipt Date: 20210920
  Transmission Date: 20211014
  Serious: Yes (Other)
  Sender: FDA-Public Use
  Company Number: US-SA-2021SA241589

PATIENT
  Age: 59 Year
  Sex: Female

DRUGS (1)
  1. LANTUS SOLOSTAR [Suspect]
     Active Substance: INSULIN GLARGINE
     Indication: TYPE 1 DIABETES MELLITUS
     Dosage: 10 IU, Q12H
     Route: 065

REACTIONS (3)
  - Inappropriate schedule of product administration [Unknown]
  - Diabetes mellitus inadequate control [Not Recovered/Not Resolved]
  - Suspected product quality issue [Not Recovered/Not Resolved]
